FAERS Safety Report 19059034 (Version 1)
Quarter: 2021Q1

REPORT INFORMATION
  Report Type: Spontaneous
  Country: DK (occurrence: DK)
  Receive Date: 20210325
  Receipt Date: 20210325
  Transmission Date: 20210420
  Serious: Yes (Hospitalization)
  Sender: FDA-Public Use
  Company Number: DK-TEVA-2021-DK-1893365

PATIENT
  Age: 92 Year
  Sex: Female
  Weight: 71 kg

DRUGS (12)
  1. OXABENZ [Suspect]
     Active Substance: OXAZEPAM
     Indication: SEDATIVE THERAPY
     Dosage: STRENGTH: 15 MG?DOSAGE: MAX 3 TIMES DAILY, 7.5MG
     Route: 048
     Dates: start: 20210201, end: 20210207
  2. NITROLINGUAL [Concomitant]
     Active Substance: NITROGLYCERIN
     Indication: PAIN
     Dates: start: 20171009
  3. KALEORID [Concomitant]
     Active Substance: POTASSIUM CHLORIDE
     Indication: PRODUCT USED FOR UNKNOWN INDICATION
     Dates: start: 20141111
  4. DIGOXIN DAK [Concomitant]
     Active Substance: DIGOXIN
     Indication: HEART RATE IRREGULAR
     Dates: start: 20140618
  5. OCULAC [Concomitant]
     Indication: DRY EYE
     Dates: start: 20180919
  6. HYPROSAN [Concomitant]
     Indication: EYE DISORDER
     Dates: start: 20181206
  7. FURIX RETARD [Concomitant]
     Active Substance: FUROSEMIDE
     Indication: HYPERTENSION
     Dates: start: 20140708
  8. MAREVAN [Concomitant]
     Active Substance: WARFARIN SODIUM
     Indication: ANTICOAGULANT THERAPY
     Dates: start: 20150123
  9. VIBEDEN [Concomitant]
     Active Substance: HYDROXOCOBALAMIN
     Indication: VITAMIN B12 DEFICIENCY
     Dates: start: 20131220
  10. PINEX [Concomitant]
     Indication: PAIN
     Dates: start: 20140429
  11. LOSARTANKALIUM KRKA [Concomitant]
     Indication: CARDIAC DISORDER
     Dates: start: 20160107
  12. METOPROLOL TARTRATE. [Concomitant]
     Active Substance: METOPROLOL TARTRATE
     Indication: ANGINA PECTORIS
     Dates: start: 20140131

REACTIONS (2)
  - Confusional state [Recovered/Resolved]
  - Mental disorder [Recovered/Resolved]

NARRATIVE: CASE EVENT DATE: 20210205
